FAERS Safety Report 7429761-4 (Version None)
Quarter: 2011Q2

REPORT INFORMATION
  Report Type: 
  Country: None (occurrence: None)
  Receive Date: 20110421
  Receipt Date: 20110413
  Transmission Date: 20111010
  Serious: Yes (Other)
  Sender: FDA-Public Use
  Company Number: PHEH2010US03486

PATIENT
  Sex: Male

DRUGS (40)
  1. HUMULIN R [Concomitant]
  2. NORVASC [Concomitant]
  3. LEVOTHYROXINE SODIUM [Concomitant]
  4. VYTORIN [Concomitant]
  5. ZETIA [Concomitant]
  6. AXID [Concomitant]
  7. POTASSIUM CHLORIDE [Concomitant]
  8. GUAIFENESIN [Concomitant]
  9. LYRICA [Concomitant]
  10. CAPTOPRIL [Concomitant]
  11. FLOMAX [Concomitant]
  12. AMARYL [Concomitant]
  13. THEOPHYLLINE [Concomitant]
  14. HYOSCYAMINE [Concomitant]
  15. ZEGERID [Concomitant]
  16. ALTACE [Concomitant]
  17. FUROSEMIDE [Concomitant]
  18. ATENOLOL [Concomitant]
  19. ALLOPURINOL [Concomitant]
  20. ANAPROX [Concomitant]
  21. ESGIC [Concomitant]
  22. ARTHROTEC [Concomitant]
  23. HYGROTON [Concomitant]
  24. HYDRALAZINE [Concomitant]
  25. ZANTAC [Concomitant]
  26. ZELNORM [Suspect]
     Indication: GASTRIC DISORDER
  27. COZAAR [Concomitant]
  28. BUMETANIDE [Concomitant]
  29. TRICOR [Concomitant]
  30. REGLAN [Concomitant]
  31. ZYRTEC [Concomitant]
  32. NEURONTIN [Concomitant]
  33. LANOXIN [Concomitant]
  34. HUMULIN L                               /CAN/ [Concomitant]
  35. SINGULAIR [Concomitant]
  36. PEPCID [Concomitant]
  37. NOVOLOG [Concomitant]
  38. SPIRONOLACTONE [Concomitant]
  39. ACCOLATE [Concomitant]
  40. ULTRAM [Concomitant]

REACTIONS (18)
  - ARTERIOSCLEROSIS [None]
  - PULMONARY OEDEMA [None]
  - MYOCARDIAL INFARCTION [None]
  - INJURY [None]
  - HYDRONEPHROSIS [None]
  - DECREASED INTEREST [None]
  - DIZZINESS [None]
  - NEPHROLITHIASIS [None]
  - DISABILITY [None]
  - VERTIGO [None]
  - IRRITABLE BOWEL SYNDROME [None]
  - ABDOMINAL DISTENSION [None]
  - HYPOKALAEMIA [None]
  - ANXIETY [None]
  - OEDEMA PERIPHERAL [None]
  - PAIN [None]
  - ORTHOSTATIC HYPOTENSION [None]
  - CARDIAC DISORDER [None]
